FAERS Safety Report 17474485 (Version 2)
Quarter: 2020Q2

REPORT INFORMATION
  Report Type: Spontaneous
  Country: GB (occurrence: GB)
  Receive Date: 20200228
  Receipt Date: 20200513
  Transmission Date: 20200713
  Serious: Yes (Other)
  Sender: FDA-Public Use
  Company Number: NVSC2020GB056704

PATIENT
  Age: 68 Year
  Sex: Male
  Weight: 84 kg

DRUGS (2)
  1. TERBINAFINE. [Suspect]
     Active Substance: TERBINAFINE
     Indication: PRODUCT USED FOR UNKNOWN INDICATION
     Dosage: 250 MG, QD
     Route: 065
     Dates: start: 20200109
  2. BETAMETHASONE VALERATE. [Concomitant]
     Active Substance: BETAMETHASONE VALERATE
     Indication: PRODUCT USED FOR UNKNOWN INDICATION
     Dosage: 2 DF, QD (APPLY FOR 1-2 WEEKS)
     Route: 065
     Dates: start: 20200109, end: 20200116

REACTIONS (1)
  - Liver function test abnormal [Unknown]

NARRATIVE: CASE EVENT DATE: 20200210
